FAERS Safety Report 20533549 (Version 1)
Quarter: 2022Q1

REPORT INFORMATION
  Report Type: Spontaneous
  Country: US (occurrence: None)
  Receive Date: 20220301
  Receipt Date: 20220301
  Transmission Date: 20220423
  Serious: Yes (Hospitalization)
  Sender: FDA-Public Use
  Company Number: None

PATIENT
  Age: 66 Year
  Sex: Female

DRUGS (13)
  1. SOTROVIMAB [Suspect]
     Active Substance: SOTROVIMAB
     Indication: COVID-19
     Dosage: OTHER FREQUENCY : ONCE;?
     Route: 042
     Dates: start: 20220223, end: 20220223
  2. albuterol HFA (VENTOLIN HFA) 90 mcg/actuation inhaler [Concomitant]
  3. alendronate (FOSAMAX) 70 mg tablet [Concomitant]
  4. aspirin 81 mg tablet [Concomitant]
  5. ceTIRIzine (ZyrTEC) 10 mg tablet [Concomitant]
  6. (Trelegy Ellipta) 100-62.5-25 mcg blister with device inhaler [Concomitant]
  7. folic acid (FOLVITE) 1 mg tablet [Concomitant]
  8. ibuprofen (ADVIL,MOTRIN) 600 mg tablet PRN [Concomitant]
  9. ipratropium-albuteroL (DUONEB) 0.5-2.5 mg/3 mL nebulizer solution PRN [Concomitant]
  10. mercaptopurine (PURINETHOL) 50 mg chemo tablet [Concomitant]
  11. omeprazole (PriLOSEC) 20 mg capsule [Concomitant]
  12. predniSONE (DELTASONE) 5 mg tablet PRN [Concomitant]
  13. roflumilast (DALIRESP) 500 mcg tablet [Concomitant]

REACTIONS (6)
  - Sepsis [None]
  - Pneumonia bacterial [None]
  - Acute myocardial infarction [None]
  - Lung consolidation [None]
  - Bronchiectasis [None]
  - Tachycardia [None]

NARRATIVE: CASE EVENT DATE: 20220224
